FAERS Safety Report 24013002 (Version 2)
Quarter: 2024Q3

REPORT INFORMATION
  Report Type: Spontaneous
  Country: US (occurrence: US)
  Receive Date: 20240626
  Receipt Date: 20240816
  Transmission Date: 20241017
  Serious: No
  Sender: JOHNSON AND JOHNSON
  Company Number: US-JNJFOC-20240603016

PATIENT
  Age: 61 Year
  Sex: Female

DRUGS (8)
  1. IMODIUM A-D [Suspect]
     Active Substance: LOPERAMIDE HYDROCHLORIDE
     Indication: Diarrhoea
     Route: 048
     Dates: start: 2023
  2. ADEMPAS [Concomitant]
     Active Substance: RIOCIGUAT
     Indication: Product used for unknown indication
     Route: 065
  3. TREPROSTINIL [Concomitant]
     Active Substance: TREPROSTINIL
     Indication: Pulmonary arterial hypertension
     Dosage: (1 TABLET OF 0.125 MG AND 2.5 MG EACH)
     Route: 048
     Dates: start: 2023
  4. TREPROSTINIL [Concomitant]
     Active Substance: TREPROSTINIL
     Dosage: (1 TABLET OF 2.5 MG, 2 0.125 MG EACH AND 2 TABLETS OF 0.25 MG)
     Route: 048
     Dates: end: 202402
  5. TREPROSTINIL [Concomitant]
     Active Substance: TREPROSTINIL
     Route: 048
     Dates: start: 202402
  6. TREPROSTINIL [Concomitant]
     Active Substance: TREPROSTINIL
     Dosage: (1 TABLET OF 0.125 MG, 0.25 MG AND 2.5 MG EACH)
     Route: 048
  7. TREPROSTINIL [Concomitant]
     Active Substance: TREPROSTINIL
     Route: 048
     Dates: start: 202310
  8. ORENITRAM [Concomitant]
     Active Substance: TREPROSTINIL
     Indication: Pulmonary arterial hypertension
     Route: 065
     Dates: start: 2023

REACTIONS (1)
  - Therapeutic response decreased [Unknown]

NARRATIVE: CASE EVENT DATE: 20230101
